FAERS Safety Report 5990241-4 (Version None)
Quarter: 2008Q4

REPORT INFORMATION
  Report Type: 
  Country: None (occurrence: None)
  Receive Date: 20081211
  Receipt Date: 20081128
  Transmission Date: 20090506
  Serious: Yes (Other)
  Sender: FDA-Public Use
  Company Number: DE-AMGEN-UK316459

PATIENT
  Sex: Female

DRUGS (1)
  1. NEUPOGEN [Suspect]
     Indication: PRE-EXISTING DISEASE
     Route: 065

REACTIONS (7)
  - BACK PAIN [None]
  - CHILLS [None]
  - DELIRIUM [None]
  - FATIGUE [None]
  - HYPERSENSITIVITY [None]
  - PELVIC PAIN [None]
  - THERAPEUTIC RESPONSE DECREASED [None]
